FAERS Safety Report 5704137-6 (Version None)
Quarter: 2008Q2

REPORT INFORMATION
  Report Type: 
  Country: None (occurrence: None)
  Receive Date: 20080414
  Receipt Date: 20080407
  Transmission Date: 20081010
  Serious: Yes (Life-Threatening, Hospitalization)
  Sender: FDA-Public Use
  Company Number: US-BRISTOL-MYERS SQUIBB COMPANY-14141899

PATIENT
  Age: 49 Year
  Sex: Female

DRUGS (4)
  1. METFORMIN HCL [Suspect]
  2. NIFEDIPINE [Concomitant]
  3. SODIUM BICARBONATE [Concomitant]
  4. SEVELAMER HCL [Concomitant]

REACTIONS (2)
  - LACTIC ACIDOSIS [None]
  - MYOCARDIAL INFARCTION [None]
